FAERS Safety Report 10509043 (Version 1)
Quarter: 2014Q3

REPORT INFORMATION
  Report Type: Spontaneous
  Country: US (occurrence: None)
  Receive Date: 20140915
  Receipt Date: 20140915
  Transmission Date: 20150326
  Serious: Yes (Other)
  Sender: FDA-Public Use
  Company Number: 2014-US-006052

PATIENT
  Age: 38 Year
  Sex: Female

DRUGS (3)
  1. PRE NATAL VITAMINS (VITAMIN) [Concomitant]
  2. XYREM [Suspect]
     Active Substance: SODIUM OXYBATE
     Indication: NARCOLEPSY
     Route: 048
     Dates: start: 201404, end: 2014
  3. XYREM [Suspect]
     Active Substance: SODIUM OXYBATE
     Indication: CATAPLEXY
     Route: 048
     Dates: start: 201404, end: 2014

REACTIONS (4)
  - Hallucination, auditory [None]
  - Peripheral coldness [None]
  - Delusion [None]
  - Weight decreased [None]
